FAERS Safety Report 8536324-6 (Version None)
Quarter: 2012Q3

REPORT INFORMATION
  Report Type: 
  Country: None (occurrence: None)
  Receive Date: 20120725
  Receipt Date: 20120713
  Transmission Date: 20120928
  Serious: Yes (Hospitalization)
  Sender: FDA-Public Use
  Company Number: IT-ROCHE-1088452

PATIENT
  Sex: Male

DRUGS (1)
  1. VESANOID [Suspect]
     Indication: ACUTE LEUKAEMIA
     Route: 048
     Dates: start: 20120101, end: 20120330

REACTIONS (2)
  - HYPERCALCAEMIA [None]
  - HYPERHIDROSIS [None]
